FAERS Safety Report 9055195 (Version 3)
Quarter: 2013Q1

REPORT INFORMATION
  Report Type: Spontaneous
  Country: US (occurrence: US)
  Receive Date: 20130206
  Receipt Date: 20130312
  Transmission Date: 20140127
  Serious: No
  Sender: FDA-Public Use
  Company Number: US-PFIZER INC-2013042490

PATIENT
  Age: 73 Year
  Sex: Female
  Weight: 68 kg

DRUGS (10)
  1. PREMARIN [Suspect]
     Dosage: UNKNOWN DOSE (BETWEEN 0.5GM TO 1GM), DAILY
     Route: 067
     Dates: start: 20130125
  2. PREMARIN [Suspect]
     Dosage: 1 G, 1X/DAY (AT BEDTIME)
     Route: 067
  3. ALLEGRA [Concomitant]
     Indication: SKIN DISORDER
     Dosage: 180 MG, 1X/DAY
     Route: 048
  4. ASPIR-81 [Concomitant]
     Dosage: 81 MG, UNK
     Route: 048
  5. VITAMIN C PLUS [Concomitant]
     Dosage: 1 DF (1 TABLET), 1X/DAY
     Route: 048
  6. CALCIUM MAGNESIUM ZINC [Concomitant]
     Dosage: 1 DF (1 TABLET), 1X/DAY
     Route: 048
  7. COD-LIVER OIL [Concomitant]
     Dosage: 1 DF (1 CAPSULE), 1X/DAY
     Route: 048
  8. COQ-10 + FISH OIL [Concomitant]
     Dosage: 1 DF (1 CAPSULE), 1X/DAY
     Route: 048
  9. PROBIOTICS [Concomitant]
     Dosage: 1 DF (1 CAPSULE), 1X/DAY
     Route: 048
  10. TRIAMCINOLONE ACETONIDE [Concomitant]
     Dosage: 1 EXTERNAL APPLICATION, 2X/DAY
     Route: 061

REACTIONS (5)
  - Vulvovaginal pain [Not Recovered/Not Resolved]
  - Genital rash [Not Recovered/Not Resolved]
  - Vulvovaginal pruritus [Not Recovered/Not Resolved]
  - Vulvovaginal burning sensation [Not Recovered/Not Resolved]
  - Vaginal discharge [Not Recovered/Not Resolved]
